FAERS Safety Report 21051096 (Version 2)
Quarter: 2022Q3

REPORT INFORMATION
  Report Type: Spontaneous
  Country: US (occurrence: US)
  Receive Date: 20220707
  Receipt Date: 20220912
  Transmission Date: 20221027
  Serious: Yes (Other)
  Sender: FDA-Public Use
  Company Number: US-SA-SAC20220705000712

PATIENT
  Age: 43 Year
  Sex: Female

DRUGS (2)
  1. LEMTRADA [Suspect]
     Active Substance: ALEMTUZUMAB
     Indication: Multiple sclerosis
     Dosage: UNK
     Route: 042
     Dates: end: 2018
  2. LEMTRADA [Suspect]
     Active Substance: ALEMTUZUMAB
     Dosage: UNKNOWN, APRIL 2019
     Dates: start: 201904, end: 2022

REACTIONS (1)
  - Triple negative breast cancer [Unknown]

NARRATIVE: CASE EVENT DATE: 20220601
